FAERS Safety Report 25230601 (Version 1)
Quarter: 2025Q2

REPORT INFORMATION
  Report Type: Spontaneous
  Country: FR (occurrence: FR)
  Receive Date: 20250423
  Receipt Date: 20250423
  Transmission Date: 20250716
  Serious: Yes (Other)
  Sender: B BRAUN
  Company Number: FR-B.Braun Medical Inc.-2175446

PATIENT
  Age: 33 Year
  Sex: Male
  Weight: 72 kg

DRUGS (12)
  1. ACETAMINOPHEN [Suspect]
     Active Substance: ACETAMINOPHEN
     Indication: Prophylaxis
     Dates: start: 20250317, end: 20250321
  2. PROPOFOL [Suspect]
     Active Substance: PROPOFOL
  3. HUMALOG [Suspect]
     Active Substance: INSULIN LISPRO
  4. POTASSIUM [Suspect]
     Active Substance: POTASSIUM
  5. NEFOPAM [Suspect]
     Active Substance: NEFOPAM
  6. VITAMIN K [Suspect]
     Active Substance: PHYTONADIONE
  7. NOREPINEPHRINE BITARTRATE [Suspect]
     Active Substance: NOREPINEPHRINE BITARTRATE
  8. FENTANYL [Suspect]
     Active Substance: FENTANYL
  9. CISATRACURIUM [Suspect]
     Active Substance: CISATRACURIUM
  10. MORPHINE [Suspect]
     Active Substance: MORPHINE
  11. ENOXAPARIN SODIUM [Suspect]
     Active Substance: ENOXAPARIN SODIUM
  12. MIDAZOLAM [Suspect]
     Active Substance: MIDAZOLAM

REACTIONS (1)
  - Pancreatitis acute [Recovering/Resolving]
